FAERS Safety Report 4329174-8 (Version None)
Quarter: 2004Q2

REPORT INFORMATION
  Report Type: 
  Country: None (occurrence: None)
  Receive Date: 20040401
  Receipt Date: 20040326
  Transmission Date: 20050107
  Serious: Yes (Other)
  Sender: FDA-Public Use
  Company Number: 200413573GDDC

PATIENT
  Age: 29 Year
  Sex: Male
  Weight: 53.5 kg

DRUGS (4)
  1. METRONIDAZOLE [Suspect]
     Indication: HELICOBACTER INFECTION
     Dosage: DOSE: UNK
     Route: 048
     Dates: start: 20040213, end: 20040216
  2. LANSOPRAZOLE [Suspect]
     Indication: HELICOBACTER INFECTION
     Dosage: DOSE: UNK
     Route: 048
     Dates: start: 20040213, end: 20040216
  3. CLARITHROMYCIN [Suspect]
     Indication: HELICOBACTER INFECTION
     Dosage: DOSE: UNK
     Route: 048
     Dates: start: 20040213, end: 20040216
  4. RISPERIDONE [Suspect]
     Indication: SCHIZOPHRENIA
     Route: 048
     Dates: start: 20031204

REACTIONS (4)
  - DRUG INTERACTION [None]
  - DYSPEPSIA [None]
  - PSYCHOTIC DISORDER [None]
  - THINKING ABNORMAL [None]
